FAERS Safety Report 9221594 (Version 1)
Quarter: 2013Q2

REPORT INFORMATION
  Report Type: Spontaneous
  Country: US (occurrence: None)
  Receive Date: 20130408
  Receipt Date: 20130408
  Transmission Date: 20140414
  Serious: Yes (Hospitalization)
  Sender: FDA-Public Use
  Company Number: None

PATIENT
  Age: 57 Year
  Sex: Male
  Weight: 62.6 kg

DRUGS (10)
  1. ALIMTA [Suspect]
     Indication: PROSTATE CANCER METASTATIC
     Dosage: 688MG IV DAYS 1, 15
     Route: 042
     Dates: start: 20130220, end: 20130404
  2. TAXOTERE [Suspect]
     Indication: PROSTATE CANCER METASTATIC
     Dosage: 69MG IV DAYS 1, 15
     Route: 042
     Dates: start: 20130220, end: 20130404
  3. MORHINE SULFATE [Concomitant]
  4. OXYCODONE [Concomitant]
  5. IRON [Concomitant]
  6. CYANOCOBALAMIN [Concomitant]
  7. FOLIC ACID [Concomitant]
  8. DEXAMETHASONE [Concomitant]
  9. MORPINE BR [Concomitant]
  10. NEULASTA [Concomitant]

REACTIONS (3)
  - Diarrhoea [None]
  - Clostridium test positive [None]
  - Febrile neutropenia [None]
